FAERS Safety Report 9131530 (Version 2)
Quarter: 2013Q3

REPORT INFORMATION
  Report Type: Spontaneous
  Country: US (occurrence: US)
  Receive Date: 20130301
  Receipt Date: 20130709
  Transmission Date: 20140515
  Serious: Yes (Other)
  Sender: FDA-Public Use
  Company Number: US-PFIZER INC-2013067691

PATIENT
  Age: 59 Year
  Sex: Male
  Weight: 75.28 kg

DRUGS (2)
  1. BENEFIX [Suspect]
     Indication: PROPHYLAXIS
     Dosage: 90 IU/KG, 3 TIMES PER WEEK
     Route: 042
  2. BENEFIX [Suspect]
     Indication: FACTOR IX DEFICIENCY

REACTIONS (3)
  - Haemorrhage [Unknown]
  - Off label use [Unknown]
  - Joint injury [Unknown]
